FAERS Safety Report 4486877-2 (Version None)
Quarter: 2004Q3

REPORT INFORMATION
  Report Type: 
  Country: None (occurrence: None)
  Receive Date: 20040921
  Receipt Date: 20040611
  Transmission Date: 20050211
  Serious: Yes (Death)
  Sender: FDA-Public Use
  Company Number: 028-20785-04060441

PATIENT
  Age: 71 Year
  Sex: Female

DRUGS (1)
  1. THALOMID [Suspect]
     Indication: LYMPHOMA
     Dosage: QHS, PER ORAL
     Route: 048
     Dates: start: 20030601

REACTIONS (1)
  - DEATH [None]
